FAERS Safety Report 5823351-2 (Version None)
Quarter: 2008Q3

REPORT INFORMATION
  Report Type: 
  Country: None (occurrence: None)
  Receive Date: 20080725
  Receipt Date: 20080715
  Transmission Date: 20090109
  Serious: Yes (Hospitalization)
  Sender: FDA-Public Use
  Company Number: US-JNJFOC-20080703766

PATIENT
  Sex: Female

DRUGS (2)
  1. REMICADE [Suspect]
     Indication: PSORIASIS
     Dosage: PATIENT HAD 2 DOSES OF INFLIXIMAB.
     Route: 042
  2. HUMIRA [Suspect]
     Indication: PSORIASIS

REACTIONS (1)
  - DERMATITIS EXFOLIATIVE [None]
